FAERS Safety Report 17054609 (Version 1)
Quarter: 2019Q4

REPORT INFORMATION
  Report Type: Spontaneous
  Country: US (occurrence: US)
  Receive Date: 20191120
  Receipt Date: 20191120
  Transmission Date: 20200122
  Serious: No
  Sender: FDA-Public Use
  Company Number: US-JNJFOC-20191112887

PATIENT
  Sex: Male

DRUGS (1)
  1. ERLEADA [Suspect]
     Active Substance: APALUTAMIDE
     Indication: PRODUCT USED FOR UNKNOWN INDICATION
     Dosage: TAKE 4 TABLETS (60MG) TABLETS ONCE DAILY.
     Route: 048

REACTIONS (2)
  - Cough [Not Recovered/Not Resolved]
  - Respiratory tract congestion [Not Recovered/Not Resolved]
